FAERS Safety Report 11324720 (Version 1)
Quarter: 2015Q3

REPORT INFORMATION
  Report Type: Spontaneous
  Country: US (occurrence: US)
  Receive Date: 20150730
  Receipt Date: 20150730
  Transmission Date: 20151125
  Serious: No
  Sender: FDA-Public Use
  Company Number: US-009507513-1507USA009711

PATIENT
  Age: 54 Year
  Sex: Male

DRUGS (2)
  1. TRUSOPT [Suspect]
     Active Substance: DORZOLAMIDE HYDROCHLORIDE
     Indication: GLAUCOMA
     Dosage: ONE DROP IN THE RIGHT EYE, TWICE DAILY
     Route: 047
  2. LUMIGAN [Concomitant]
     Active Substance: BIMATOPROST

REACTIONS (5)
  - Ocular hyperaemia [Recovered/Resolved]
  - Product quality issue [Unknown]
  - Eye irritation [Recovered/Resolved]
  - Eye inflammation [Recovered/Resolved]
  - Eye burns [Recovered/Resolved]

NARRATIVE: CASE EVENT DATE: 2015
